FAERS Safety Report 6607901-4 (Version None)
Quarter: 2010Q1

REPORT INFORMATION
  Report Type: 
  Country: None (occurrence: None)
  Receive Date: 20100301
  Receipt Date: 20100222
  Transmission Date: 20100710
  Serious: Yes (Death)
  Sender: FDA-Public Use
  Company Number: CHPA2010US03720

PATIENT
  Age: 81 Year
  Sex: Female

DRUGS (3)
  1. FERROUS SULFATE (NCH) [Suspect]
  2. ACETAMINOPHEN [Suspect]
  3. FAMCICLOVIR [Suspect]

REACTIONS (1)
  - INTENTIONAL DRUG MISUSE [None]
